FAERS Safety Report 7768019-0 (Version None)
Quarter: 2011Q3

REPORT INFORMATION
  Report Type: 
  Country: None (occurrence: None)
  Receive Date: 20110922
  Receipt Date: 20110523
  Transmission Date: 20111222
  Serious: Yes (Other)
  Sender: FDA-Public Use
  Company Number: US-ASTRAZENECA-2011SE31535

PATIENT
  Age: 33 Year
  Sex: Female

DRUGS (7)
  1. SEROQUEL [Suspect]
     Route: 048
  2. RISPERDAL [Suspect]
  3. TEGRETOL [Suspect]
  4. ILOPERIDONE [Suspect]
     Route: 048
  5. ABILIFY [Suspect]
  6. ZOLPIDEM TARTRATE [Suspect]
     Route: 048
  7. RISPERDAL [Suspect]

REACTIONS (2)
  - INSOMNIA [None]
  - HALLUCINATION [None]
